FAERS Safety Report 5105335-5 (Version None)
Quarter: 2006Q3

REPORT INFORMATION
  Report Type: 
  Country: None (occurrence: None)
  Receive Date: 20060731
  Receipt Date: 20050621
  Transmission Date: 20061208
  Serious: Yes (Death)
  Sender: FDA-Public Use
  Company Number: US-JNJFOC-20050400781

PATIENT
  Age: 69 Year
  Sex: Female

DRUGS (11)
  1. RISPERDAL [Suspect]
     Indication: DEMENTIA
     Dosage: 0.5 MG, 1 IN 1 DAY
     Dates: start: 20041201, end: 20050228
  2. ASPIRIN [Concomitant]
  3. DIGOXIN [Concomitant]
  4. PROTONICS (PANTOPRAZOLE) [Concomitant]
  5. KLONOPIN [Concomitant]
  6. AVANDIA [Concomitant]
  7. PLAVIX [Concomitant]
  8. RENAGEL [Concomitant]
  9. ZOCOR [Concomitant]
  10. VASOTEC [Concomitant]
  11. TYLOX [Concomitant]

REACTIONS (1)
  - CARDIAC ARREST [None]
